FAERS Safety Report 7943756-3 (Version None)
Quarter: 2011Q4

REPORT INFORMATION
  Report Type: 
  Country: None (occurrence: None)
  Receive Date: 20111128
  Receipt Date: 20111118
  Transmission Date: 20120403
  Serious: Yes (Life-Threatening, Hospitalization)
  Sender: FDA-Public Use
  Company Number: FR-ROCHE-740324

PATIENT
  Sex: Male
  Weight: 68 kg

DRUGS (5)
  1. NEUPOGEN [Concomitant]
     Dates: start: 20100423, end: 20100602
  2. ENTECAVIR [Suspect]
     Indication: PRODUCT USED FOR UNKNOWN INDICATION
     Route: 065
  3. PEGINTERFERON ALFA-2A [Suspect]
     Indication: HEPATITIS B
     Dosage: LAST DOSE PRIOR TO SAE ON 02 JUN 2010
     Route: 058
     Dates: start: 20100423, end: 20100602
  4. DEXERYL (FRANCE) [Concomitant]
     Dates: start: 20100506, end: 20100602
  5. OMEPRAZOLE [Concomitant]
     Dosage: 20 MG/J
     Dates: start: 20100506, end: 20100602

REACTIONS (1)
  - HEPATIC NEOPLASM MALIGNANT [None]
